FAERS Safety Report 9402447 (Version 1)
Quarter: 2013Q3

REPORT INFORMATION
  Report Type: Spontaneous
  Country: US (occurrence: None)
  Receive Date: 20130712
  Receipt Date: 20130712
  Transmission Date: 20140515
  Serious: Yes (Other)
  Sender: FDA-Public Use
  Company Number: None

PATIENT
  Age: 38 Year
  Sex: Female

DRUGS (1)
  1. LOW-OGESTREL 28 [Suspect]
     Dosage: 1,1,PO
     Route: 048
     Dates: start: 20130601, end: 20130731

REACTIONS (8)
  - Decreased appetite [None]
  - Headache [None]
  - Back pain [None]
  - Arthralgia [None]
  - Hypoaesthesia [None]
  - Menstruation irregular [None]
  - Malaise [None]
  - Nausea [None]
